FAERS Safety Report 5949758-0 (Version None)
Quarter: 2008Q4

REPORT INFORMATION
  Report Type: 
  Country: None (occurrence: None)
  Receive Date: 20081112
  Receipt Date: 20081103
  Transmission Date: 20090506
  Serious: Yes (Death, Other)
  Sender: FDA-Public Use
  Company Number: TR-BAYER-200829937GPV

PATIENT
  Age: 38 Year
  Sex: Female

DRUGS (7)
  1. FLUDARABINE PHOSPHATE [Suspect]
     Indication: STEM CELL TRANSPLANT
     Route: 065
  2. TRIMETHOPRIM [Concomitant]
     Indication: PROPHYLAXIS
     Route: 065
  3. SULPHAMETHOXAZOLE [Concomitant]
     Indication: PROPHYLAXIS
     Route: 065
  4. ACYCLOVIR [Concomitant]
     Indication: ANTIVIRAL PROPHYLAXIS
     Route: 065
  5. CYCLOSPORINE [Concomitant]
     Indication: PROPHYLAXIS AGAINST GRAFT VERSUS HOST DISEASE
     Route: 065
  6. METHOTREXATE [Concomitant]
     Indication: PROPHYLAXIS AGAINST GRAFT VERSUS HOST DISEASE
  7. ANTIFUNGALS [Concomitant]
     Indication: FUNGAL INFECTION
     Route: 065

REACTIONS (3)
  - ACUTE GRAFT VERSUS HOST DISEASE IN INTESTINE [None]
  - NEUTROPENIA [None]
  - PNEUMONIA FUNGAL [None]
